FAERS Safety Report 22321479 (Version 1)
Quarter: 2023Q2

REPORT INFORMATION
  Report Type: Report from Study
  Country: US (occurrence: US)
  Receive Date: 20230515
  Receipt Date: 20230515
  Transmission Date: 20230722
  Serious: Yes (Hospitalization, Other)
  Sender: FDA-Public Use
  Company Number: US-GILEAD-2023-0626666

PATIENT
  Sex: Female

DRUGS (5)
  1. AMBRISENTAN [Suspect]
     Active Substance: AMBRISENTAN
     Indication: Pulmonary hypertension
     Dosage: 10 MG, QD
     Route: 065
     Dates: start: 20141023
  2. AMBRISENTAN [Suspect]
     Active Substance: AMBRISENTAN
     Indication: HIV infection
  3. TADALAFIL [Concomitant]
     Active Substance: TADALAFIL
  4. XARELTO [Concomitant]
     Active Substance: RIVAROXABAN
  5. TYVASO [Concomitant]
     Active Substance: TREPROSTINIL

REACTIONS (4)
  - Pulmonary hypertension [Unknown]
  - Oedema [Unknown]
  - Fluid retention [Unknown]
  - Off label use [Unknown]
